FAERS Safety Report 6946777-2 (Version None)
Quarter: 2010Q3

REPORT INFORMATION
  Report Type: 
  Country: None (occurrence: None)
  Receive Date: 20100825
  Receipt Date: 20100819
  Transmission Date: 20110219
  Serious: Yes (Disabling)
  Sender: FDA-Public Use
  Company Number: 2010BN000045

PATIENT
  Age: 62 Year
  Sex: Male

DRUGS (4)
  1. MELPHALAN HYDROCHLORIDE [Suspect]
     Indication: STEM CELL TRANSPLANT
  2. CYCLOPHOSPHAMIDE [Concomitant]
  3. THALIDOMIDE [Concomitant]
  4. DEXAMETHASONE [Concomitant]

REACTIONS (5)
  - AREFLEXIA [None]
  - ASTHENIA [None]
  - HYPOAESTHESIA [None]
  - PARAESTHESIA [None]
  - RADIAL NERVE PALSY [None]
